FAERS Safety Report 9015010 (Version 2)
Quarter: 2013Q1

REPORT INFORMATION
  Report Type: Spontaneous
  Country: CA (occurrence: CA)
  Receive Date: 20130116
  Receipt Date: 20130130
  Transmission Date: 20140127
  Serious: Yes (Death, Hospitalization)
  Sender: FDA-Public Use
  Company Number: CA-AMGEN-CANSP2013001688

PATIENT
  Age: 48 Year
  Sex: Female
  Weight: 61 kg

DRUGS (3)
  1. XGEVA [Suspect]
     Indication: BREAST CANCER
     Dosage: 120 MG, QMO
     Route: 058
     Dates: start: 20111018, end: 20121121
  2. XGEVA [Suspect]
     Indication: BONE DISORDER
  3. GEMCITABINE [Concomitant]
     Indication: BREAST CANCER
     Dosage: 1570 MG, DAY 1, 8 Q 21 DAYS
     Route: 042
     Dates: start: 20120919, end: 20121031

REACTIONS (1)
  - Breast cancer [Fatal]
